FAERS Safety Report 6128871-1 (Version None)
Quarter: 2009Q1

REPORT INFORMATION
  Report Type: 
  Country: None (occurrence: None)
  Receive Date: 20090320
  Receipt Date: 20090316
  Transmission Date: 20090719
  Serious: Yes (Other)
  Sender: FDA-Public Use
  Company Number: A0773720A

PATIENT
  Age: 51 Year
  Sex: Male

DRUGS (2)
  1. CALCIUM CARBONATE (FORMULATION UNKNOWN)(CALCIUM CARBONATE) [Suspect]
     Indication: DRUG USE FOR UNKNOWN INDICATION
     Dosage: ORAL
     Route: 048
     Dates: start: 20080101
  2. ALGINIC ACID + ALUMINIUM HYDROXIDE + MAGNESIUM CARBONATE (FO (ALGIN.AC [Suspect]
     Indication: DRUG USE FOR UNKNOWN INDICATION
     Dosage: ORAL
     Route: 048

REACTIONS (7)
  - BURNING SENSATION [None]
  - CONDITION AGGRAVATED [None]
  - CRYSTAL URINE PRESENT [None]
  - DRUG INEFFECTIVE [None]
  - DYSURIA [None]
  - GOUT [None]
  - NEPHROLITHIASIS [None]
